FAERS Safety Report 9163307 (Version 2)
Quarter: 2013Q1

REPORT INFORMATION
  Report Type: Spontaneous
  Country: DE (occurrence: DE)
  Receive Date: 20130314
  Receipt Date: 20130321
  Transmission Date: 20140127
  Serious: Yes (Hospitalization)
  Sender: FDA-Public Use
  Company Number: DE-GLAXOSMITHKLINE-D0079058A

PATIENT
  Age: 44 Year
  Sex: Female

DRUGS (4)
  1. VIANI [Suspect]
     Indication: CHRONIC OBSTRUCTIVE PULMONARY DISEASE
     Route: 055
     Dates: start: 20130130, end: 20130212
  2. SALBUTAMOL [Suspect]
     Indication: CHRONIC OBSTRUCTIVE PULMONARY DISEASE
     Route: 055
  3. ACLIDINIUM BROMIDE [Suspect]
     Indication: CHRONIC OBSTRUCTIVE PULMONARY DISEASE
     Route: 065
     Dates: start: 20130130
  4. NOVOPULMON [Suspect]

REACTIONS (13)
  - Dyspnoea [Recovered/Resolved]
  - Aggression [Recovered/Resolved]
  - Chest pain [Recovered/Resolved]
  - Fatigue [Unknown]
  - Exercise tolerance decreased [Not Recovered/Not Resolved]
  - Oropharyngeal pain [Unknown]
  - Cough [Unknown]
  - Panic attack [Unknown]
  - Headache [Unknown]
  - Dizziness [Unknown]
  - Irritability [Recovered/Resolved]
  - Abnormal faeces [Not Recovered/Not Resolved]
  - Mood altered [Recovered/Resolved]
